FAERS Safety Report 6393636-2 (Version None)
Quarter: 2009Q4

REPORT INFORMATION
  Report Type: 
  Country: None (occurrence: None)
  Receive Date: 20091008
  Receipt Date: 20090928
  Transmission Date: 20100525
  Serious: Yes (Hospitalization)
  Sender: FDA-Public Use
  Company Number: CA-JNJFOC-20090701918

PATIENT
  Age: 68 Year
  Sex: Female
  Weight: 70 kg

DRUGS (3)
  1. REMICADE [Suspect]
     Indication: CROHN'S DISEASE
     Route: 042
     Dates: start: 20090505, end: 20090619
  2. IMURAN [Concomitant]
     Route: 065
  3. SEPTRA [Concomitant]
     Route: 065

REACTIONS (8)
  - ABDOMINAL DISCOMFORT [None]
  - ASTHENIA [None]
  - FATIGUE [None]
  - HEADACHE [None]
  - INTESTINAL OPERATION [None]
  - PYREXIA [None]
  - TUBERCULOSIS GASTROINTESTINAL [None]
  - URINARY TRACT INFECTION [None]
